FAERS Safety Report 9877355 (Version 1)
Quarter: 2014Q1

REPORT INFORMATION
  Report Type: Report from Study
  Country: US (occurrence: US)
  Receive Date: 20140206
  Receipt Date: 20140206
  Transmission Date: 20141002
  Serious: Yes (Death)
  Sender: FDA-Public Use
  Company Number: US-ROCHE-1321578

PATIENT
  Sex: Female
  Weight: 76.91 kg

DRUGS (8)
  1. AVASTIN [Suspect]
     Indication: UTERINE CANCER
     Dosage: THERAPY DATE: 23/MAR/2011, 14/APR/2011
     Route: 042
     Dates: start: 20110210
  2. AVASTIN [Suspect]
     Route: 042
     Dates: start: 20110304
  3. TOPOTECAN [Concomitant]
     Indication: UTERINE CANCER
     Route: 065
     Dates: start: 20110210, end: 20110210
  4. ASPIRIN [Concomitant]
     Indication: UTERINE CANCER
     Route: 065
  5. CRESTOR [Concomitant]
  6. LOVAZA [Concomitant]
  7. MIRALAX [Concomitant]
  8. ZOFRAN [Concomitant]
     Route: 048

REACTIONS (2)
  - Death [Fatal]
  - Hernia [Unknown]
